FAERS Safety Report 16015668 (Version 1)
Quarter: 2019Q1

REPORT INFORMATION
  Report Type: Spontaneous
  Country: GB (occurrence: GB)
  Receive Date: 20190228
  Receipt Date: 20190228
  Transmission Date: 20190418
  Serious: Yes (Other)
  Sender: FDA-Public Use
  Company Number: GB-ASTRAZENECA-2019SE30090

PATIENT
  Age: 66 Year
  Sex: Male
  Weight: 104 kg

DRUGS (10)
  1. CITALOPRAM [Concomitant]
     Active Substance: CITALOPRAM HYDROBROMIDE
     Dosage: USE AS DIRECTED
     Dates: start: 20181108
  2. METFORMIN [Concomitant]
     Active Substance: METFORMIN HYDROCHLORIDE
     Dates: start: 20070518
  3. DAPAGLIFLOZIN. [Concomitant]
     Active Substance: DAPAGLIFLOZIN
     Dates: start: 20181205, end: 20190206
  4. SIMVASTATIN. [Concomitant]
     Active Substance: SIMVASTATIN
     Dosage: EVENING
     Dates: start: 20041007
  5. NITRAZEPAM [Concomitant]
     Active Substance: NITRAZEPAM
     Dosage: ONE OR TWO TO BE TAKEN AT NIGHT
     Dates: start: 20111011
  6. DAPAGLIFLOZIN. [Suspect]
     Active Substance: DAPAGLIFLOZIN
     Route: 048
     Dates: start: 20181205
  7. FLUAD NOS [Concomitant]
     Active Substance: INFLUENZA VIRUS VACCINE
     Dates: start: 20181109, end: 20181110
  8. TADALAFIL. [Concomitant]
     Active Substance: TADALAFIL
     Dosage: USE AS DIRECTED
     Dates: start: 20090813
  9. SAXAGLIPTIN [Concomitant]
     Active Substance: SAXAGLIPTIN
     Dates: start: 20130108
  10. DAKTACORT [Concomitant]
     Active Substance: HYDROCORTISONE\MICONAZOLE NITRATE
     Dosage: APPLY
     Dates: start: 20150330

REACTIONS (1)
  - Anxiety [Recovered/Resolved]

NARRATIVE: CASE EVENT DATE: 20190206
